FAERS Safety Report 8916443 (Version 5)
Quarter: 2013Q4

REPORT INFORMATION
  Report Type: Spontaneous
  Country: US (occurrence: US)
  Receive Date: 20121120
  Receipt Date: 20131021
  Transmission Date: 20140711
  Serious: Yes (Hospitalization)
  Sender: FDA-Public Use
  Company Number: US-BAYER-2012-118943

PATIENT
  Age: 28 Year
  Sex: Female
  Weight: 113.83 kg

DRUGS (4)
  1. YAZ [Suspect]
     Indication: CONTRACEPTION
     Dosage: UNK
     Dates: start: 20110827, end: 20120529
  2. YAZ [Suspect]
     Indication: ACNE
  3. GIANVI [Suspect]
     Indication: ACNE
     Dosage: UNK
     Dates: start: 20110817, end: 20120616
  4. TRAMADOL HYDROCHLORIDE [Concomitant]
     Dosage: 50 MG, UNK

REACTIONS (10)
  - Deep vein thrombosis [None]
  - Pelvic venous thrombosis [None]
  - Deep vein thrombosis [None]
  - Injury [None]
  - Off label use [None]
  - Pain [None]
  - Fear of disease [None]
  - Emotional distress [None]
  - Anhedonia [None]
  - Pain [None]
